FAERS Safety Report 5369989-0 (Version None)
Quarter: 2007Q2

REPORT INFORMATION
  Report Type: 
  Country: None (occurrence: None)
  Receive Date: 20070626
  Receipt Date: 20070619
  Transmission Date: 20071010
  Serious: Yes (Hospitalization)
  Sender: FDA-Public Use
  Company Number: PHNU2007DE02185

PATIENT
  Age: 67 Year
  Sex: Female
  Weight: 110 kg

DRUGS (6)
  1. AREDIA [Suspect]
     Indication: PLASMACYTOMA
     Dosage: 90 MG, QMO
     Route: 042
     Dates: start: 19980301, end: 20070417
  2. MELPHALAN [Concomitant]
     Dosage: UNK, UNK
     Route: 048
     Dates: start: 19980301
  3. PREDNISOLONE [Concomitant]
     Route: 065
     Dates: start: 19980301
  4. INTERFERON [Concomitant]
     Route: 065
  5. CHEMOTHERAPEUTICS,OTHER [Concomitant]
     Dates: start: 20060301
  6. BONDRONAT [Suspect]
     Dosage: 4MG, ONCE
     Dates: start: 20070417

REACTIONS (5)
  - ABSCESS JAW [None]
  - HYPOAESTHESIA [None]
  - OSTEOMYELITIS [None]
  - SURGERY [None]
  - TOOTH EXTRACTION [None]
